FAERS Safety Report 15077382 (Version 1)
Quarter: 2018Q2

REPORT INFORMATION
  Report Type: Spontaneous
  Country: RO (occurrence: RO)
  Receive Date: 20180627
  Receipt Date: 20180627
  Transmission Date: 20180711
  Serious: Yes (Other)
  Sender: FDA-Public Use
  Company Number: RO-MYLANLABS-2018M1038897

PATIENT
  Age: 32 Year
  Sex: Female

DRUGS (2)
  1. LANSOPRAZOLE. [Suspect]
     Active Substance: LANSOPRAZOLE
     Indication: DYSPEPSIA
     Dosage: STARTED 8 MONTHS EARLIER, INITIALLY 40 DAYS CONTINOUSLY, THEN INTERMITTENTLY, WHEN NEEDED
     Route: 065
  2. LANSOPRAZOLE. [Suspect]
     Active Substance: LANSOPRAZOLE
     Indication: DYSPEPSIA
     Dosage: UNK
     Route: 065

REACTIONS (12)
  - Nonspecific reaction [Unknown]
  - Anaphylactic reaction [Unknown]
  - Pruritus [Unknown]
  - Conjunctival hyperaemia [Unknown]
  - Drug hypersensitivity [Unknown]
  - Generalised erythema [Unknown]
  - Rhinorrhoea [Unknown]
  - Presyncope [Unknown]
  - Nasal obstruction [Unknown]
  - Asthenia [Unknown]
  - Diarrhoea [Unknown]
  - Nausea [Unknown]
